APPROVED DRUG PRODUCT: CETIRIZINE HYDROCHLORIDE AND PSEUDOEPHEDRINE HYDROCHLORIDE
Active Ingredient: CETIRIZINE HYDROCHLORIDE; PSEUDOEPHEDRINE HYDROCHLORIDE
Strength: 5MG;120MG
Dosage Form/Route: TABLET, EXTENDED RELEASE;ORAL
Application: A212409 | Product #001
Applicant: AUROBINDO PHARMA LTD
Approved: Mar 8, 2023 | RLD: No | RS: No | Type: DISCN